FAERS Safety Report 11825425 (Version 1)
Quarter: 2015Q4

REPORT INFORMATION
  Report Type: Report from Study
  Country: US (occurrence: US)
  Receive Date: 20151211
  Receipt Date: 20151211
  Transmission Date: 20160305
  Serious: Yes (Hospitalization, Other)
  Sender: FDA-Public Use
  Company Number: US-AMGEN-USACT2015131587

PATIENT
  Age: 46 Year
  Sex: Female

DRUGS (5)
  1. FILGRASTIM [Suspect]
     Active Substance: FILGRASTIM
     Indication: UTERINE LEIOMYOSARCOMA
     Dosage: 150 MUG/M2, ON DAYS 9-15
     Route: 058
  2. BEVACIZUMAB [Suspect]
     Active Substance: BEVACIZUMAB
     Indication: UTERINE LEIOMYOSARCOMA
     Dosage: 15 MG/KG, OVER 30-90 MIN ON DAY 1, LAST DOSE PRIOR TO SAE ON 26/OCT/2011
     Route: 042
     Dates: start: 20110923
  3. PEGFILGRASTIM [Suspect]
     Active Substance: PEGFILGRASTIM
     Indication: UTERINE LEIOMYOSARCOMA
     Dosage: 6 MG, ON DAY 9 OR DAY 10
     Route: 058
  4. DOCETAXEL. [Suspect]
     Active Substance: DOCETAXEL
     Indication: UTERINE LEIOMYOSARCOMA
     Dosage: 75 MG/M2, OVER 60 MIN ON DAY 8
     Route: 042
  5. GEMCITABINE [Suspect]
     Active Substance: GEMCITABINE\GEMCITABINE HYDROCHLORIDE
     Indication: UTERINE LEIOMYOSARCOMA
     Dosage: 900 MG/M2, OVER 90 MIN ON DAYS 1 AND 8
     Route: 042
     Dates: start: 20110923

REACTIONS (1)
  - Abdominal infection [Unknown]

NARRATIVE: CASE EVENT DATE: 20120112
